FAERS Safety Report 8925636 (Version 1)
Quarter: 2012Q4

REPORT INFORMATION
  Report Type: 
  Country: AU (occurrence: AU)
  Receive Date: 20121126
  Receipt Date: 20121126
  Transmission Date: 20130627
  Serious: Yes (Death)
  Sender: FDA-Public Use
  Company Number: AU-ROCHE-1159780

PATIENT
  Age: 34 Year
  Sex: Male

DRUGS (3)
  1. VALIUM [Suspect]
     Indication: PAIN
     Route: 065
  2. OXYCONTIN [Suspect]
     Indication: PAIN
     Route: 065
     Dates: start: 19940101
  3. SEREPAX [Suspect]
     Indication: PAIN
     Route: 065

REACTIONS (5)
  - Accidental overdose [Fatal]
  - Emotional poverty [Fatal]
  - Asocial behaviour [Fatal]
  - Drug dependence [Fatal]
  - Decreased interest [Fatal]
